FAERS Safety Report 8936779 (Version 1)
Quarter: 2012Q4

REPORT INFORMATION
  Report Type: Report from Study
  Country: DE (occurrence: DE)
  Receive Date: 20121130
  Receipt Date: 20121130
  Transmission Date: 20130627
  Serious: Yes (Other)
  Sender: FDA-Public Use
  Company Number: DE-BAYER-2012-123619

PATIENT
  Sex: Male

DRUGS (3)
  1. ACETYLSALICYLIC ACID({=100 MG) [Suspect]
     Indication: ESSENTIAL THROMBOCYTHEMIA
  2. ACETYLSALICYLIC ACID({=100 MG) [Suspect]
     Indication: THROMBOSIS PROPHYLAXIS
  3. ANAGRELIDE [Concomitant]

REACTIONS (3)
  - Altered state of consciousness [None]
  - Epistaxis [None]
  - Asthenia [None]
